FAERS Safety Report 8036570-4 (Version None)
Quarter: 2012Q1

REPORT INFORMATION
  Report Type: 
  Country: None (occurrence: None)
  Receive Date: 20120111
  Receipt Date: 20120110
  Transmission Date: 20120608
  Serious: Yes (Life-Threatening, Hospitalization)
  Sender: FDA-Public Use
  Company Number: JP-B.I. PHARMACEUTICALS,INC./RIDGEFIELD-2011-BP-23455NB

PATIENT
  Sex: Male
  Weight: 62.6 kg

DRUGS (7)
  1. FAMOTIDINE [Concomitant]
     Indication: MYELITIS
     Dosage: 40 MG
     Route: 048
     Dates: start: 20101002
  2. HEAVY MAGNESIUM OXIDE [Concomitant]
     Indication: CONSTIPATION
     Dosage: 1 G
     Route: 065
     Dates: start: 20110514, end: 20110813
  3. MECOBALAMIN [Concomitant]
     Indication: MYELITIS
     Dosage: 1500 MCG
     Route: 048
     Dates: start: 20101002
  4. LYRICA [Concomitant]
     Indication: MYELITIS
     Dosage: 50 MG
     Route: 048
     Dates: start: 20110716
  5. GABAPENTIN [Concomitant]
     Dosage: 800 MG
     Route: 048
     Dates: start: 20101120
  6. PRADAXA [Suspect]
     Indication: ATRIAL FIBRILLATION
     Dosage: 220 MG
     Route: 048
     Dates: start: 20110818, end: 20110912
  7. ETICALM [Concomitant]
     Indication: MYELITIS
     Dosage: 1 MG
     Route: 048
     Dates: start: 20110319

REACTIONS (4)
  - DYSPNOEA [None]
  - HAEMATOCHEZIA [None]
  - ULCER HAEMORRHAGE [None]
  - HAEMOGLOBIN DECREASED [None]
